FAERS Safety Report 4356650-4 (Version None)
Quarter: 2004Q2

REPORT INFORMATION
  Report Type: 
  Country: None (occurrence: None)
  Receive Date: 20040507
  Receipt Date: 20040426
  Transmission Date: 20050107
  Serious: Yes (Hospitalization)
  Sender: FDA-Public Use
  Company Number: 2004210973GB

PATIENT
  Age: 81 Year
  Sex: Male
  Weight: 60 kg

DRUGS (6)
  1. CELEBREX [Suspect]
     Indication: BACK PAIN
     Dosage: 100 MG, BID, ORAL
     Route: 048
     Dates: start: 20010718, end: 20040214
  2. ASPIRIN [Concomitant]
  3. CO-PROXAMOL (DEXTROPROPOXYPHENE HYDROCHLORIDE) [Concomitant]
  4. ZOLADEX [Concomitant]
  5. GLUCONATE SODIUM (GLUCONATE SODIUM) [Concomitant]
  6. BICALUTAMIDE [Concomitant]

REACTIONS (5)
  - BARRETT'S OESOPHAGUS [None]
  - DUODENITIS [None]
  - GASTRITIS [None]
  - HIATUS HERNIA [None]
  - MELAENA [None]
